FAERS Safety Report 20481949 (Version 1)
Quarter: 2022Q1

REPORT INFORMATION
  Report Type: Spontaneous
  Country: AU (occurrence: AU)
  Receive Date: 20220216
  Receipt Date: 20220216
  Transmission Date: 20220423
  Serious: Yes (Other)
  Sender: FDA-Public Use
  Company Number: AU-TEVA-2022-AU-2008106

PATIENT
  Age: 34 Year
  Sex: Female

DRUGS (1)
  1. FENTANYL CITRATE [Suspect]
     Active Substance: FENTANYL CITRATE
     Route: 065

REACTIONS (2)
  - Bradycardia [Recovered/Resolved]
  - Exposure during pregnancy [Recovered/Resolved]
